FAERS Safety Report 20303300 (Version 2)
Quarter: 2022Q2

REPORT INFORMATION
  Report Type: Spontaneous
  Country: GB (occurrence: GB)
  Receive Date: 20220106
  Receipt Date: 20220606
  Transmission Date: 20220721
  Serious: Yes (Other)
  Sender: FDA-Public Use
  Company Number: None

PATIENT
  Age: 57 Year
  Sex: Female
  Weight: 61.2 kg

DRUGS (1)
  1. INFLIXIMAB [Suspect]
     Active Substance: INFLIXIMAB
     Indication: Seronegative arthritis
     Route: 042
     Dates: start: 20211201, end: 20211201

REACTIONS (2)
  - Dyspnoea [Recovered/Resolved]
  - Product use in unapproved indication [Unknown]
